FAERS Safety Report 14540952 (Version 1)
Quarter: 2018Q1

REPORT INFORMATION
  Report Type: Spontaneous
  Country: US (occurrence: US)
  Receive Date: 20180216
  Receipt Date: 20180216
  Transmission Date: 20180509
  Serious: Yes (Hospitalization, Other)
  Sender: FDA-Public Use
  Company Number: US-OTSUKA-KJ20040919

PATIENT

DRUGS (4)
  1. ABILIFY [Suspect]
     Active Substance: ARIPIPRAZOLE
     Indication: ABNORMAL BEHAVIOUR
     Route: 048
     Dates: start: 200401, end: 200403
  2. TENEX [Suspect]
     Active Substance: GUANFACINE HYDROCHLORIDE
     Route: 065
     Dates: start: 200208, end: 200403
  3. ABILIFY [Suspect]
     Active Substance: ARIPIPRAZOLE
     Indication: ABNORMAL BEHAVIOUR
     Route: 048
     Dates: start: 200308, end: 200401
  4. ABILIFY [Suspect]
     Active Substance: ARIPIPRAZOLE
     Indication: ABNORMAL BEHAVIOUR
     Route: 048
     Dates: start: 200403, end: 20040331

REACTIONS (3)
  - Drug interaction [Recovered/Resolved]
  - Urinary incontinence [Recovered/Resolved]
  - Type 1 diabetes mellitus [Recovered/Resolved]

NARRATIVE: CASE EVENT DATE: 200403
